FAERS Safety Report 25636772 (Version 1)
Quarter: 2025Q3

REPORT INFORMATION
  Report Type: Spontaneous
  Country: GB (occurrence: GB)
  Receive Date: 20250804
  Receipt Date: 20250804
  Transmission Date: 20251020
  Serious: Yes (Other)
  Sender: ACCORD
  Company Number: None

PATIENT
  Age: 87 Year
  Sex: Male
  Weight: 78 kg

DRUGS (5)
  1. FINASTERIDE [Suspect]
     Active Substance: FINASTERIDE
     Indication: Product used for unknown indication
     Dates: start: 20240524, end: 20250422
  2. ATORVASTATIN [Concomitant]
     Active Substance: ATORVASTATIN
  3. BENDROFLUMETHIAZIDE [Concomitant]
     Active Substance: BENDROFLUMETHIAZIDE
     Dosage: 2.5 MG DAILY
  4. SPIKEVAX [Concomitant]
     Active Substance: CX-046684
     Dates: start: 20250402, end: 20250402
  5. TAMSULOSIN [Concomitant]
     Active Substance: TAMSULOSIN
     Dosage: 400 MCH DAILY

REACTIONS (3)
  - Depressed mood [Unknown]
  - Depression [Unknown]
  - Mood swings [Unknown]
